FAERS Safety Report 9631538 (Version 3)
Quarter: 2014Q2

REPORT INFORMATION
  Report Type: Spontaneous
  Country: US (occurrence: US)
  Receive Date: 20131018
  Receipt Date: 20140609
  Transmission Date: 20141212
  Serious: Yes (Other)
  Sender: FDA-Public Use
  Company Number: US-PFIZER INC-2013294952

PATIENT
  Age: 55 Year
  Sex: Female

DRUGS (18)
  1. AROMASIN [Suspect]
     Indication: BREAST CANCER
     Dosage: 25 MG, 1X/DAY
     Route: 048
     Dates: start: 201204
  2. WELLBUTRIN [Concomitant]
     Indication: MENTAL DISORDER
     Dosage: 300 MG, UNK
     Route: 048
  3. VALTREX [Concomitant]
     Dosage: 500 MG, 2X/DAY
     Route: 048
  4. NEURONTIN [Concomitant]
     Dosage: 300 MG, 3X/DAY
     Route: 048
  5. PREVACID [Concomitant]
     Dosage: UNK
     Route: 048
  6. ZOLOFT [Concomitant]
     Indication: MENTAL DISORDER
     Dosage: 100 MG, DAILY
     Route: 048
  7. XANAX [Concomitant]
     Indication: MENTAL DISORDER
     Dosage: 1 MG, 3X/DAY
     Route: 048
  8. KLONOPIN [Concomitant]
     Indication: MENTAL DISORDER
     Dosage: 2 MG, 1X/DAY (NIGHTLY)
     Route: 048
  9. CENTRUM [Concomitant]
     Dosage: UNK
     Route: 048
  10. CALCIUM CARBONATE/COLECALCIFEROL/MINERALS NOS [Concomitant]
     Dosage: UNK
     Route: 048
  11. BIOTIN [Concomitant]
     Dosage: UNK
     Route: 048
  12. B COMPLEX [Concomitant]
     Dosage: UNK
     Route: 048
  13. OMEGA-3 [Concomitant]
     Dosage: UNK
     Route: 048
  14. VOLTAREN [Concomitant]
     Indication: PAIN
     Dosage: 2 GRAMS, AS NEEDED (TWICE DAILY PRN)
  15. EPINEPHRINE [Concomitant]
     Dosage: 0.3 MG/0.3 ML AS NEEDED (ONCE)
     Route: 030
  16. DELTASONE [Concomitant]
     Dosage: 50 MG (1 TABLET), AS NEEDED (DAILY)
     Route: 048
  17. BENADRYL [Concomitant]
     Dosage: 50 MG, SINGLE (2 TABLET OF 25 MG ONCE)
     Route: 048
  18. CLARINEX [Concomitant]
     Dosage: 5 MG (1 TABLET), DAILY
     Route: 048

REACTIONS (8)
  - Ovarian disorder [Unknown]
  - Osteoporosis [Unknown]
  - Arthritis [Unknown]
  - Alopecia [Unknown]
  - Arthralgia [Unknown]
  - Insomnia [Unknown]
  - Menopausal symptoms [Unknown]
  - Tremor [Unknown]
